FAERS Safety Report 17441110 (Version 3)
Quarter: 2020Q2

REPORT INFORMATION
  Report Type: Spontaneous
  Country: US (occurrence: US)
  Receive Date: 20200220
  Receipt Date: 20200402
  Transmission Date: 20200713
  Serious: No
  Sender: FDA-Public Use
  Company Number: US-GLAXOSMITHKLINE-US2020028813

PATIENT
  Sex: Male

DRUGS (1)
  1. NICODERM CQ [Suspect]
     Active Substance: NICOTINE
     Indication: PRODUCT USED FOR UNKNOWN INDICATION
     Dosage: 21 MG
     Dates: start: 20200212

REACTIONS (5)
  - Product complaint [Unknown]
  - Application site erythema [Recovered/Resolved]
  - Application site pain [Unknown]
  - Application site reaction [Unknown]
  - Wrong technique in product usage process [Unknown]
